FAERS Safety Report 6646075-0 (Version None)
Quarter: 2010Q1

REPORT INFORMATION
  Report Type: 
  Country: None (occurrence: None)
  Receive Date: 20100323
  Receipt Date: 20100310
  Transmission Date: 20100710
  Serious: No
  Sender: FDA-Public Use
  Company Number: US-JNJFOC-20100303399

PATIENT
  Sex: Male
  Weight: 58.97 kg

DRUGS (8)
  1. FENTANYL-100 [Suspect]
     Indication: PAIN
     Dosage: NDC 0781-7113-55
     Route: 062
  2. FENTANYL-100 [Suspect]
     Route: 062
  3. FENTANYL-100 [Suspect]
     Route: 062
  4. CYMBALTA [Concomitant]
     Indication: DEPRESSION
     Route: 048
  5. LYRICA [Concomitant]
     Route: 048
  6. PERCOCET [Concomitant]
     Indication: PAIN
     Route: 048
  7. ASPIRIN [Concomitant]
     Route: 048
  8. BACLOFEN [Concomitant]
     Route: 048

REACTIONS (1)
  - DRUG ADMINISTERED AT INAPPROPRIATE SITE [None]
